FAERS Safety Report 4335153-7 (Version None)
Quarter: 2004Q1

REPORT INFORMATION
  Report Type: 
  Country: None (occurrence: None)
  Receive Date: 20040329
  Receipt Date: 20031205
  Transmission Date: 20041129
  Serious: No
  Sender: FDA-Public Use
  Company Number: 03P-163-0244149-00

PATIENT
  Age: 39 Year
  Sex: Female
  Weight: 49.8957 kg

DRUGS (2)
  1. HUMIRA [Suspect]
     Indication: RHEUMATOID ARTHRITIS
     Dosage: 40 MG IN 1 IN 2 WK SUBCUTANEOUS
     Route: 058
     Dates: start: 20031126
  2. PREDNISONE [Concomitant]

REACTIONS (2)
  - COUGH [None]
  - NASAL CONGESTION [None]
